FAERS Safety Report 15941370 (Version 2)
Quarter: 2019Q1

REPORT INFORMATION
  Report Type: Spontaneous
  Country: US (occurrence: US)
  Receive Date: 20190208
  Receipt Date: 20190222
  Transmission Date: 20190417
  Serious: Yes (Other)
  Sender: FDA-Public Use
  Company Number: US-ASTRAZENECA-2018SF21191

PATIENT

DRUGS (17)
  1. NEXIUM 24HR [Suspect]
     Active Substance: ESOMEPRAZOLE MAGNESIUM
     Route: 048
     Dates: start: 20140328, end: 20151129
  2. TACROLIMUS. [Concomitant]
     Active Substance: TACROLIMUS
  3. FOLIC ACID. [Concomitant]
     Active Substance: FOLIC ACID
  4. METOPROLOL. [Concomitant]
     Active Substance: METOPROLOL
  5. NOVOLOG [Concomitant]
     Active Substance: INSULIN ASPART
  6. NEXIUM [Suspect]
     Active Substance: ESOMEPRAZOLE MAGNESIUM
     Route: 048
     Dates: start: 20010220, end: 20151129
  7. HUMALOG [Concomitant]
     Active Substance: INSULIN LISPRO
  8. ATORVASTATIN [Concomitant]
     Active Substance: ATORVASTATIN
  9. PREDNISONE. [Concomitant]
     Active Substance: PREDNISONE
  10. CIPROFLOXACIN. [Concomitant]
     Active Substance: CIPROFLOXACIN
  11. ONDANSETRON [Concomitant]
     Active Substance: ONDANSETRON
  12. RAMIPRIL. [Concomitant]
     Active Substance: RAMIPRIL
  13. NEXIUM [Suspect]
     Active Substance: ESOMEPRAZOLE MAGNESIUM
     Route: 048
     Dates: start: 200912, end: 201511
  14. NEXIUM [Suspect]
     Active Substance: ESOMEPRAZOLE MAGNESIUM
     Route: 048
     Dates: start: 20151028
  15. NEXIUM 24HR [Suspect]
     Active Substance: ESOMEPRAZOLE MAGNESIUM
     Route: 048
     Dates: start: 200912, end: 201511
  16. FUROSEMIDE. [Concomitant]
     Active Substance: FUROSEMIDE
  17. LOVAZA [Concomitant]
     Active Substance: OMEGA-3-ACID ETHYL ESTERS

REACTIONS (2)
  - Chronic kidney disease [Unknown]
  - Renal injury [Unknown]
